FAERS Safety Report 13863726 (Version 2)
Quarter: 2017Q3

REPORT INFORMATION
  Report Type: Spontaneous
  Country: US (occurrence: US)
  Receive Date: 20170814
  Receipt Date: 20170821
  Transmission Date: 20171127
  Serious: Yes (Other)
  Sender: FDA-Public Use
  Company Number: US-BAYER-200214488BWH

PATIENT
  Sex: Female

DRUGS (2)
  1. AVELOX [Suspect]
     Active Substance: MOXIFLOXACIN HYDROCHLORIDE
     Route: 048
     Dates: start: 200204, end: 200204
  2. CITRACAL [Concomitant]
     Active Substance: CALCIUM CITRATE

REACTIONS (3)
  - Head discomfort [Not Recovered/Not Resolved]
  - Intracranial pressure increased [Not Recovered/Not Resolved]
  - Mydriasis [Not Recovered/Not Resolved]

NARRATIVE: CASE EVENT DATE: 200204
